FAERS Safety Report 17655373 (Version 1)
Quarter: 2020Q2

REPORT INFORMATION
  Report Type: Spontaneous
  Country: HU (occurrence: NL)
  Receive Date: 20200410
  Receipt Date: 20200410
  Transmission Date: 20200713
  Serious: Yes (Other)
  Sender: FDA-Public Use
  Company Number: HU-MICRO LABS LIMITED-ML2020-01147

PATIENT
  Age: 1 Week
  Sex: Male
  Weight: 3.45 kg

DRUGS (2)
  1. VITAMIN K [Suspect]
     Active Substance: PHYTONADIONE
     Indication: UMBILICAL CORD HAEMORRHAGE
     Route: 065
  2. TRANEXAMIC ACID. [Suspect]
     Active Substance: TRANEXAMIC ACID
     Indication: UMBILICAL CORD HAEMORRHAGE

REACTIONS (1)
  - Drug ineffective [Unknown]
